FAERS Safety Report 5942461-2 (Version None)
Quarter: 2008Q4

REPORT INFORMATION
  Report Type: 
  Country: None (occurrence: None)
  Receive Date: 20081105
  Receipt Date: 20081024
  Transmission Date: 20090506
  Serious: Yes (Hospitalization, Other)
  Sender: FDA-Public Use
  Company Number: CH-PFIZER INC-2008073004

PATIENT
  Sex: Female
  Weight: 75 kg

DRUGS (7)
  1. ZYVOXID [Suspect]
     Indication: STAPHYLOCOCCAL INFECTION
     Route: 048
     Dates: start: 20080914, end: 20080920
  2. ZYVOXID [Suspect]
     Indication: INFECTION
  3. RIMACTANE [Suspect]
     Indication: STAPHYLOCOCCAL INFECTION
     Dates: start: 20080826
  4. GYNOFLOR [Concomitant]
  5. ALDACTONE [Concomitant]
     Dosage: TEXT:25MG DAILY)
     Route: 048
  6. PANTOZOL [Concomitant]
     Dosage: TEXT:40MG DAILY
     Route: 048
  7. INDERAL LA [Concomitant]
     Dosage: TEXT:80MG DAILY
     Route: 048

REACTIONS (7)
  - CONFUSIONAL STATE [None]
  - FLATULENCE [None]
  - HALLUCINATION [None]
  - INSOMNIA [None]
  - NAUSEA [None]
  - RASH GENERALISED [None]
  - VISUAL IMPAIRMENT [None]
